FAERS Safety Report 8767109 (Version 2)
Quarter: 2012Q4

REPORT INFORMATION
  Report Type: 
  Country: CA (occurrence: CA)
  Receive Date: 20120904
  Receipt Date: 20120914
  Transmission Date: 20130627
  Serious: Yes (Death)
  Sender: FDA-Public Use
  Company Number: CA-JNJFOC-20120814069

PATIENT

DRUGS (31)
  1. DOXORUBICIN [Suspect]
     Indication: ACUTE LYMPHOCYTIC LEUKAEMIA
     Dosage: on day 1 (intensification therapy for 30 weeks, cycle1-7; 21 days/cycle)
     Route: 042
  2. DOXORUBICIN [Suspect]
     Indication: ACUTE LYMPHOCYTIC LEUKAEMIA
     Dosage: on day 1 (central nervous system therapy for 3 weeks)
     Route: 042
  3. DOXORUBICIN [Suspect]
     Indication: ACUTE LYMPHOCYTIC LEUKAEMIA
     Dosage: on days 0 and 1 (induction therapy for 4 weeks)
     Route: 042
  4. DOXORUBICIN [Suspect]
     Indication: ACUTE LYMPHOCYTIC LEUKAEMIA
     Dosage: on days 0 and 1 (induction therapy for 4 weeks)
     Route: 042
  5. DOXORUBICIN [Suspect]
     Indication: ACUTE LYMPHOCYTIC LEUKAEMIA
     Dosage: on day 1 (intensification therapy for 30 weeks, cycle1-7; 21 days/cycle)
     Route: 042
  6. DOXORUBICIN [Suspect]
     Indication: ACUTE LYMPHOCYTIC LEUKAEMIA
     Dosage: on day 1 (central nervous system therapy for 3 weeks)
     Route: 042
  7. IMATINIB [Suspect]
     Indication: ACUTE LYMPHOCYTIC LEUKAEMIA
     Dosage: from day 2-14 (induction therapy for 4 weeks)
     Route: 048
  8. IMATINIB [Suspect]
     Indication: ACUTE LYMPHOCYTIC LEUKAEMIA
     Dosage: from day 1-14 (intensification therapy for 30 weeks, 10 cycles - 21 days/cycle)
     Route: 048
  9. IMATINIB [Suspect]
     Indication: ACUTE LYMPHOCYTIC LEUKAEMIA
     Dosage: from day 1-14 (central nervous system therapy for 3 weeks)
     Route: 048
  10. IMATINIB [Suspect]
     Indication: ACUTE LYMPHOCYTIC LEUKAEMIA
     Dosage: from day 1-14 (maintenance therapy for 72 weeks, 24 weeks - 21 days/cycle)
     Route: 048
  11. PREDNISONE [Suspect]
     Indication: ACUTE LYMPHOCYTIC LEUKAEMIA
     Dosage: from day 0-28 (induction therapy for 4 weeks)
     Route: 048
  12. VINCRISTINE [Suspect]
     Indication: ACUTE LYMPHOCYTIC LEUKAEMIA
     Dosage: on day 1 (intensification therapy for 30 weeks, 10 cycles - 21 days/cycle)
     Route: 042
  13. VINCRISTINE [Suspect]
     Indication: ACUTE LYMPHOCYTIC LEUKAEMIA
     Dosage: on days 0, 7, 14 and 21 (induction therapy for 4 weeks)
     Route: 042
  14. VINCRISTINE [Suspect]
     Indication: ACUTE LYMPHOCYTIC LEUKAEMIA
     Dosage: on day 1 (central nervous system therapy for 3 weeks)
     Route: 042
  15. VINCRISTINE [Suspect]
     Indication: ACUTE LYMPHOCYTIC LEUKAEMIA
     Dosage: on day 1 (maintenance therapy for 72 weeks, 24 cycles - 21 days/cycle)
     Route: 042
  16. METHOTREXATE [Suspect]
     Indication: ACUTE LYMPHOCYTIC LEUKAEMIA
     Dosage: Days 2, 9 amd 16 (cycles 8-10 only)
     Route: 042
  17. METHOTREXATE [Suspect]
     Indication: ACUTE LYMPHOCYTIC LEUKAEMIA
     Dosage: over 1 hour on day 2 (induction therapy for 4 weeks)
     Route: 042
  18. METHOTREXATE [Suspect]
     Indication: ACUTE LYMPHOCYTIC LEUKAEMIA
     Dosage: Days 1, 8, 15 in maintenance therapy
     Route: 042
  19. LEUCOVORIN [Suspect]
     Indication: ACUTE LYMPHOCYTIC LEUKAEMIA
     Dosage: over 1 hour
     Route: 065
  20. ASPARAGINASE [Suspect]
     Indication: ACUTE LYMPHOCYTIC LEUKAEMIA
     Dosage: 12500 IU/m2 on days 1, 8 and 15 (intensification theray for 30 weeks, 10 cycles - 21 days/cycle)
     Route: 030
  21. ASPARAGINASE [Suspect]
     Indication: ACUTE LYMPHOCYTIC LEUKAEMIA
     Dosage: 25000 IU/m2 on day 4 (induction therapy for 4 weeks)
     Route: 030
  22. 6-MERCAPTOPURINE [Suspect]
     Indication: ACUTE LYMPHOCYTIC LEUKAEMIA
     Dosage: every night at bedtime; days 1-14
     Route: 048
  23. RADIATION THERAPY [Suspect]
     Indication: ACUTE LYMPHOCYTIC LEUKAEMIA
     Dosage: 1200 cGy, over 8 days
     Route: 065
  24. METHOTREXATE W/CYTARABINE/HYDROCORTISONE [Suspect]
     Indication: ACUTE LYMPHOCYTIC LEUKAEMIA
     Dosage: 12/40/15 mg days (0, 14) induction,   1, 4, 8,11- CNS therapy, every 18 weeks in intensification
     Route: 037
  25. METHOTREXATE [Suspect]
     Indication: ACUTE LYMPHOCYTIC LEUKAEMIA
     Dosage: Days 1, 8 and 15
     Route: 030
  26. FLUCONAZOLE [Concomitant]
     Indication: ANTIFUNGAL PROPHYLAXIS
     Dosage: during induction
     Route: 065
  27. TRIMETHOPRIM AND SULFAMETHOXAZOLE [Concomitant]
     Indication: ANTIFUNGAL PROPHYLAXIS
     Route: 065
  28. PENTAMIDINE [Concomitant]
     Indication: ANTIFUNGAL PROPHYLAXIS
     Route: 055
  29. CALCIUM AND VITAMIN D [Concomitant]
     Indication: PROPHYLAXIS
     Route: 065
  30. ALENDRONATE [Concomitant]
     Indication: PROPHYLAXIS
     Route: 065
  31. RISEDRONATE [Concomitant]
     Indication: PROPHYLAXIS
     Route: 065

REACTIONS (3)
  - Meningitis pneumococcal [Fatal]
  - Off label use [Recovered/Resolved]
  - Stem cell transplant [None]
